FAERS Safety Report 13338676 (Version 1)
Quarter: 2017Q1

REPORT INFORMATION
  Report Type: Spontaneous
  Country: US (occurrence: US)
  Receive Date: 20170315
  Receipt Date: 20170315
  Transmission Date: 20170428
  Serious: Yes (Other)
  Sender: FDA-Public Use
  Company Number: US-BRISTOL-MYERS SQUIBB COMPANY-BMS-2017-018347

PATIENT
  Sex: Female
  Weight: 73.2 kg

DRUGS (1)
  1. COUMADIN [Suspect]
     Active Substance: WARFARIN SODIUM
     Indication: ATRIAL FIBRILLATION
     Dosage: 2.5 MG, QD
     Route: 048

REACTIONS (6)
  - Injection site bruising [Unknown]
  - Haematoma [Unknown]
  - Cardioversion [Unknown]
  - Injection site haemorrhage [Unknown]
  - Weight increased [Unknown]
  - International normalised ratio abnormal [Unknown]
